FAERS Safety Report 25013674 (Version 1)
Quarter: 2025Q1

REPORT INFORMATION
  Report Type: Spontaneous
  Country: US (occurrence: US)
  Receive Date: 20250226
  Receipt Date: 20250226
  Transmission Date: 20250408
  Serious: No
  Sender: UCB
  Company Number: US-UCBSA-2023059500

PATIENT
  Sex: Female

DRUGS (1)
  1. KEPPRA [Suspect]
     Active Substance: LEVETIRACETAM
     Indication: Seizure

REACTIONS (11)
  - Headache [Unknown]
  - Dizziness [Unknown]
  - Dissociation [Unknown]
  - Ocular discomfort [Unknown]
  - Depressed mood [Unknown]
  - Depression [Unknown]
  - Crying [Unknown]
  - Feeling abnormal [Unknown]
  - Tachyphrenia [Unknown]
  - Disturbance in attention [Unknown]
  - Agitation [Unknown]
